FAERS Safety Report 5117097-6 (Version None)
Quarter: 2006Q3

REPORT INFORMATION
  Report Type: 
  Country: None (occurrence: None)
  Receive Date: 20060925
  Receipt Date: 20060912
  Transmission Date: 20061208
  Serious: Yes (Other)
  Sender: FDA-Public Use
  Company Number: 2006110923

PATIENT
  Age: 79 Year
  Sex: Female

DRUGS (1)
  1. NIFEDIPINE [Suspect]
     Dates: end: 20050101

REACTIONS (1)
  - SQUAMOUS CELL CARCINOMA OF SKIN [None]
